FAERS Safety Report 5155319-6 (Version None)
Quarter: 2006Q4

REPORT INFORMATION
  Report Type: 
  Country: None (occurrence: None)
  Receive Date: 20061121
  Receipt Date: 20061115
  Transmission Date: 20070319
  Serious: Yes (Disabling)
  Sender: FDA-Public Use
  Company Number: 2006PK02379

PATIENT
  Age: 77 Year
  Sex: Male
  Weight: 81.2 kg

DRUGS (9)
  1. SEROQUEL [Suspect]
     Route: 048
     Dates: start: 20060426, end: 20060426
  2. SEROQUEL [Suspect]
     Route: 048
     Dates: start: 20060427, end: 20060427
  3. ERGENYL [Suspect]
     Route: 048
     Dates: start: 20060426, end: 20060426
  4. ERGENYL [Suspect]
     Route: 048
     Dates: start: 20060427, end: 20060427
  5. HALDOL [Suspect]
     Route: 042
     Dates: start: 20060426, end: 20060426
  6. DIAZEPAM [Suspect]
     Route: 042
     Dates: start: 20060426, end: 20060426
  7. FUROSEMIDE [Suspect]
     Route: 048
  8. LOPIRIN [Suspect]
     Route: 048
  9. ALNA [Concomitant]
     Route: 048

REACTIONS (2)
  - CEREBRAL INFARCTION [None]
  - HYPOTENSION [None]
